FAERS Safety Report 9645298 (Version 1)
Quarter: 2013Q4

REPORT INFORMATION
  Report Type: Spontaneous
  Country: US (occurrence: None)
  Receive Date: 20131023
  Receipt Date: 20131023
  Transmission Date: 20140711
  Serious: Yes (Life-Threatening, Other)
  Sender: FDA-Public Use
  Company Number: 001613739A

PATIENT
  Age: 30 Year
  Sex: Female

DRUGS (4)
  1. PROACTIV RENEWING CLEANSER [Suspect]
     Indication: ACNE
     Dosage: TWICE DAILY DERMAL
     Dates: start: 20130909, end: 20130924
  2. PROACTIV REPAIRING TREATMENT [Suspect]
     Indication: ACNE
     Dosage: TWICE DAILY DERMAL
     Dates: start: 20130909, end: 20130924
  3. PROACTIV SPF 15 MOISTURIZER [Suspect]
     Indication: ACNE
     Dosage: TWICE DAILY DERMAL
     Dates: start: 20130909, end: 20130924
  4. PROACTIVE DARK SPOT CORRECTOR [Suspect]
     Indication: ACNE
     Dosage: TWICE DAILY DERMAL
     Dates: start: 20130909, end: 20130924

REACTIONS (4)
  - Dry skin [None]
  - Erythema [None]
  - Swelling face [None]
  - Pyrexia [None]
